FAERS Safety Report 5487239-1 (Version None)
Quarter: 2007Q4

REPORT INFORMATION
  Report Type: 
  Country: None (occurrence: None)
  Receive Date: 20071016
  Receipt Date: 20071001
  Transmission Date: 20080405
  Serious: Yes (Hospitalization)
  Sender: FDA-Public Use
  Company Number: JP-GENENTECH-247715

PATIENT
  Sex: Female

DRUGS (4)
  1. BEVACIZUMAB [Suspect]
     Indication: RECTAL CANCER
     Dosage: 5 MG/KG, UNK
     Route: 041
     Dates: start: 20070814
  2. OXALIPLATIN [Suspect]
     Indication: RECTAL CANCER
     Dosage: 85 MG/M2, UNK
     Route: 042
     Dates: start: 20070814
  3. FLUOROURACIL [Suspect]
     Indication: RECTAL CANCER
     Dosage: 400 MG/M2, UNK
     Route: 042
     Dates: start: 20070814
  4. ISOVORIN [Suspect]
     Indication: RECTAL CANCER
     Dosage: 100 MG/M2, UNK
     Route: 041
     Dates: start: 20070814

REACTIONS (2)
  - ANOREXIA [None]
  - NAUSEA [None]
